FAERS Safety Report 10270592 (Version 2)
Quarter: 2014Q3

REPORT INFORMATION
  Report Type: Spontaneous
  Country: GB (occurrence: GB)
  Receive Date: 20140701
  Receipt Date: 20140701
  Transmission Date: 20150326
  Serious: Yes (Life-Threatening, Hospitalization)
  Sender: FDA-Public Use
  Company Number: GB-TEVA-111977ISR

PATIENT
  Age: 47 Year
  Sex: Male

DRUGS (11)
  1. AMISULPRIDE [Suspect]
     Active Substance: AMISULPRIDE
     Route: 048
  2. ZYVOX [Suspect]
     Active Substance: LINEZOLID
     Indication: STAPHYLOCOCCAL INFECTION
     Dosage: 1200 MILLIGRAM DAILY;
     Route: 042
     Dates: start: 20041017, end: 20041020
  3. HALOPERIDOL. [Suspect]
     Active Substance: HALOPERIDOL
  4. PROCYCLIDINE 5MG TABLETS BP [Suspect]
     Active Substance: PROCYCLIDINE
     Route: 048
  5. OMEPRAZOLE. [Suspect]
     Active Substance: OMEPRAZOLE
  6. DOXAZOSIN MESILATE TABLETS,1 MG [Suspect]
     Active Substance: DOXAZOSIN MESYLATE
     Route: 048
  7. PANTOPRAZOLE SODIUM. [Suspect]
     Active Substance: PANTOPRAZOLE SODIUM
  8. RIFAMPICIN [Suspect]
     Active Substance: RIFAMPIN
     Route: 042
  9. ATENOLOL. [Suspect]
     Active Substance: ATENOLOL
     Route: 048
  10. ZOPICLONE [Suspect]
     Active Substance: ZOPICLONE
  11. FENTANYL. [Suspect]
     Active Substance: FENTANYL

REACTIONS (2)
  - Drug interaction [None]
  - Hypertension [Recovered/Resolved]

NARRATIVE: CASE EVENT DATE: 20041018
